FAERS Safety Report 21357795 (Version 1)
Quarter: 2022Q3

REPORT INFORMATION
  Report Type: Spontaneous
  Country: US (occurrence: US)
  Receive Date: 20220921
  Receipt Date: 20220921
  Transmission Date: 20221027
  Serious: Yes (Other)
  Sender: FDA-Public Use
  Company Number: US-STRIDES ARCOLAB LIMITED-2022SP011034

PATIENT
  Age: 19 Year
  Sex: Female

DRUGS (4)
  1. PREDNISOLONE [Suspect]
     Active Substance: PREDNISOLONE
     Indication: Drug eruption
     Dosage: UNK
     Route: 065
  2. PREDNISOLONE [Suspect]
     Active Substance: PREDNISOLONE
     Dosage: UNK; (TAPERED)
     Route: 065
  3. HYDROCORTISONE [Suspect]
     Active Substance: HYDROCORTISONE
     Indication: Drug eruption
     Dosage: UNK
     Route: 061
  4. TRIAMCINOLONE ACETONIDE [Suspect]
     Active Substance: TRIAMCINOLONE ACETONIDE
     Indication: Drug eruption
     Dosage: UNK; CREAM
     Route: 061

REACTIONS (6)
  - Typhus [Unknown]
  - Measles [Unknown]
  - Hepatitis A [Unknown]
  - Mumps [Unknown]
  - Human herpesvirus 6 infection [Unknown]
  - Infectious mononucleosis [Unknown]
